FAERS Safety Report 5896334-4 (Version None)
Quarter: 2008Q3

REPORT INFORMATION
  Report Type: 
  Country: None (occurrence: None)
  Receive Date: 20080924
  Receipt Date: 20070928
  Transmission Date: 20090109
  Serious: Yes (Other)
  Sender: FDA-Public Use
  Company Number: US-ASTRAZENECA-2007UW20869

PATIENT
  Age: 35 Year
  Sex: Female
  Weight: 133.8 kg

DRUGS (4)
  1. SEROQUEL [Suspect]
     Indication: SCHIZOPHRENIA
     Route: 048
     Dates: start: 20041001
  2. ZOLOFT [Concomitant]
     Dosage: START DATE=PRIOR TO 2004
  3. ABILIFY [Concomitant]
     Dates: start: 20050701
  4. PROTONIX [Concomitant]

REACTIONS (1)
  - TACHYCARDIA [None]
